FAERS Safety Report 8225492-1 (Version None)
Quarter: 2012Q1

REPORT INFORMATION
  Report Type: 
  Country: None (occurrence: None)
  Receive Date: 20120321
  Receipt Date: 20120315
  Transmission Date: 20120608
  Serious: Yes (Death, Other)
  Sender: FDA-Public Use
  Company Number: US-ROXANE LABORATORIES, INC.-2012-RO-00869RO

PATIENT
  Sex: Male

DRUGS (4)
  1. METHADONE HCL [Suspect]
     Indication: DEPRESSION
  2. METHADONE HCL [Suspect]
     Indication: ANXIETY
  3. BUPRENORPHINE HCL [Suspect]
     Indication: DETOXIFICATION
     Route: 060
  4. METHADONE HCL [Suspect]
     Indication: SLEEP DISORDER

REACTIONS (4)
  - TOXICITY TO VARIOUS AGENTS [None]
  - ANXIETY [None]
  - DEPRESSION [None]
  - SLEEP DISORDER [None]
